FAERS Safety Report 21336925 (Version 2)
Quarter: 2022Q4

REPORT INFORMATION
  Report Type: Spontaneous
  Country: US (occurrence: US)
  Receive Date: 20220915
  Receipt Date: 20221007
  Transmission Date: 20230112
  Serious: Yes (Other)
  Sender: FDA-Public Use
  Company Number: US-009507513-2209USA002218

PATIENT
  Age: 63 Year
  Sex: Female

DRUGS (4)
  1. REBETOL [Suspect]
     Active Substance: RIBAVIRIN
     Indication: Infection
     Dosage: 600 MILLIGRAMS TWICE PER DAY
     Route: 048
  2. REBETOL [Suspect]
     Active Substance: RIBAVIRIN
     Dosage: 1.000 MILLIGRAMS/DAY
  3. REBETOL [Suspect]
     Active Substance: RIBAVIRIN
     Dosage: 1.000 MILLIGRAMS/DAY FOR THE SECOND COURSE OF 12 WEEKS
  4. REBETOL [Suspect]
     Active Substance: RIBAVIRIN
     Dosage: 400 MILLIGRAMS TWICE A DAY

REACTIONS (2)
  - Haemolytic anaemia [Unknown]
  - Product use in unapproved indication [Unknown]
